FAERS Safety Report 12810026 (Version 1)
Quarter: 2016Q4

REPORT INFORMATION
  Report Type: Spontaneous
  Country: US (occurrence: US)
  Receive Date: 20161004
  Receipt Date: 20161004
  Transmission Date: 20170207
  Serious: Yes (Life-Threatening, Hospitalization, Other)
  Sender: FDA-Public Use
  Company Number: None

PATIENT
  Age: 1 Year
  Sex: Female
  Weight: 9 kg

DRUGS (7)
  1. MIRALAX [Concomitant]
     Active Substance: POLYETHYLENE GLYCOL 3350
  2. SENOKOT-S [Concomitant]
     Active Substance: DOCUSATE SODIUM\SENNOSIDES
  3. AMOXICILLIN. [Concomitant]
     Active Substance: AMOXICILLIN
  4. SENNA SYRUP [Suspect]
     Active Substance: SENNOSIDES
     Indication: CONSTIPATION
     Dosage: ?          QUANTITY:15 ML;?
     Route: 048
     Dates: end: 20160928
  5. LEVOTHYROXINE. [Concomitant]
     Active Substance: LEVOTHYROXINE
  6. ESSENTIAL OILS. [Concomitant]
     Active Substance: ESSENTIAL OILS
  7. OMEGA 3 [Concomitant]
     Active Substance: OMEGA-3 FATTY ACIDS

REACTIONS (1)
  - Pneumonia [None]

NARRATIVE: CASE EVENT DATE: 20160926
